FAERS Safety Report 12726389 (Version 1)
Quarter: 2016Q3

REPORT INFORMATION
  Report Type: Spontaneous
  Country: US (occurrence: US)
  Receive Date: 20160908
  Receipt Date: 20160908
  Transmission Date: 20161109
  Serious: Yes (Life-Threatening, Hospitalization, Disabling)
  Sender: FDA-Public Use
  Company Number: None

PATIENT
  Age: 19 Year
  Sex: Female
  Weight: 49.94 kg

DRUGS (3)
  1. ADDERALL [Concomitant]
     Active Substance: AMPHETAMINE ASPARTATE\AMPHETAMINE SULFATE\DEXTROAMPHETAMINE SACCHARATE\DEXTROAMPHETAMINE SULFATE
  2. INSULIN (LLEVEMIER, HUMALOG) [Concomitant]
  3. IMPLANON [Suspect]
     Active Substance: ETONOGESTREL

REACTIONS (6)
  - Weight increased [None]
  - Thirst [None]
  - Blood glucose increased [None]
  - Type 1 diabetes mellitus [None]
  - Malaise [None]
  - Pollakiuria [None]

NARRATIVE: CASE EVENT DATE: 20160115
